FAERS Safety Report 21709421 (Version 2)
Quarter: 2023Q1

REPORT INFORMATION
  Report Type: Report from Study
  Country: US (occurrence: US)
  Receive Date: 20221210
  Receipt Date: 20230130
  Transmission Date: 20230417
  Serious: Yes (Other)
  Sender: FDA-Public Use
  Company Number: US-ABBVIE-22K-163-4492898-00

PATIENT
  Sex: Female

DRUGS (3)
  1. HUMIRA [Suspect]
     Active Substance: ADALIMUMAB
     Indication: Rheumatoid arthritis
     Route: 058
  2. HUMIRA [Suspect]
     Active Substance: ADALIMUMAB
     Route: 058
  3. JANSSEN COVID-19 VACCINE [Concomitant]
     Active Substance: AD26.COV2.S
     Indication: COVID-19 immunisation
     Dosage: TIME INTERVAL: 1 TOTAL: 1 IN ONCE
     Route: 030

REACTIONS (10)
  - Spinal operation [Unknown]
  - Fibromyalgia [Unknown]
  - Unevaluable event [Recovering/Resolving]
  - Procedural pain [Recovering/Resolving]
  - Anxiety [Unknown]
  - Malaise [Unknown]
  - Depression [Unknown]
  - Gait disturbance [Unknown]
  - Skin warm [Unknown]
  - Nodule [Unknown]
